FAERS Safety Report 7648712-0 (Version None)
Quarter: 2011Q3

REPORT INFORMATION
  Report Type: 
  Country: None (occurrence: None)
  Receive Date: 20110801
  Receipt Date: 20110724
  Transmission Date: 20111222
  Serious: Yes (Hospitalization)
  Sender: FDA-Public Use
  Company Number: PHHY2011US67260

PATIENT
  Age: 59 Year
  Sex: Female
  Weight: 72 kg

DRUGS (8)
  1. NALTREXONE HYDROCHLORIDE [Concomitant]
     Dosage: 4.5 MG, DAILY
     Dates: start: 20080602
  2. LISINOPRIL AND HYDROCHLOROTHIAZIDE [Concomitant]
     Indication: HYPERTENSION
     Dosage: 25 MG-20 MG DAILY
     Route: 048
     Dates: start: 20090124
  3. PROVIGIL [Concomitant]
     Indication: SOMNOLENCE
     Dosage: 200 MG, DAILY
     Dates: start: 20060302, end: 20100723
  4. ESTRADIOL [Concomitant]
     Indication: MENOPAUSE
     Dosage: 1 MG, DAILY
     Dates: start: 19960605, end: 20091220
  5. INTERFERON BETA-1B [Suspect]
     Indication: MULTIPLE SCLEROSIS
     Dosage: 0.44 MG, UNK
     Route: 058
     Dates: start: 20050508, end: 20091221
  6. REBIF [Concomitant]
     Dosage: 44 MCG/0.5 ML THREE TIMES A WEEK
     Dates: start: 20051101
  7. POTASSIUM CHLORIDE [Concomitant]
     Indication: ADJUVANT THERAPY
     Dosage: 10 MG, DAILY
     Route: 048
     Dates: start: 20091218, end: 20101004
  8. LIOTHYRONINE SODIUM [Concomitant]
     Dosage: 10 MEQ, DAILY
     Route: 048
     Dates: start: 20090504

REACTIONS (2)
  - CATARACT [None]
  - BREAST CANCER [None]
